FAERS Safety Report 6573195-1 (Version None)
Quarter: 2010Q1

REPORT INFORMATION
  Report Type: 
  Country: None (occurrence: None)
  Receive Date: 20100208
  Receipt Date: 20100108
  Transmission Date: 20100710
  Serious: No
  Sender: FDA-Public Use
  Company Number: US-BAYER-201011139BCC

PATIENT
  Age: 52 Year
  Sex: Female

DRUGS (2)
  1. NAPROXEN [Suspect]
     Indication: INTERVERTEBRAL DISC DEGENERATION
     Dosage: UNIT DOSE: 220 MG
     Route: 048
  2. VALIUM [Suspect]
     Indication: DRUG USE FOR UNKNOWN INDICATION
     Dosage: TOTAL DAILY DOSE: 1 DF  UNIT DOSE: 1 DF
     Route: 065

REACTIONS (2)
  - DRUG SCREEN NEGATIVE [None]
  - DRUG SCREEN POSITIVE [None]
